FAERS Safety Report 17351657 (Version 2)
Quarter: 2020Q1

REPORT INFORMATION
  Report Type: Spontaneous
  Country: JP (occurrence: JP)
  Receive Date: 20200130
  Receipt Date: 20200217
  Transmission Date: 20200409
  Serious: Yes (Death)
  Sender: FDA-Public Use
  Company Number: JP-ALLERGAN-2003833US

PATIENT
  Sex: Female

DRUGS (2)
  1. LINACLOTIDE - BP [Suspect]
     Active Substance: LINACLOTIDE
     Indication: CONSTIPATION
     Dosage: 0.25 MG, QHS
     Route: 048
  2. LINACLOTIDE - BP [Suspect]
     Active Substance: LINACLOTIDE
     Dosage: 0.25 MG, ONCE DAILY, BEFORE MEALS
     Route: 048

REACTIONS (3)
  - Marasmus [Fatal]
  - Prescribed underdose [Unknown]
  - Off label use [Unknown]
